FAERS Safety Report 13342725 (Version 1)
Quarter: 2017Q1

REPORT INFORMATION
  Report Type: Spontaneous
  Country: CA (occurrence: CA)
  Receive Date: 20170316
  Receipt Date: 20170316
  Transmission Date: 20170428
  Serious: Yes (Hospitalization, Other)
  Sender: FDA-Public Use
  Company Number: CA-TEVA-747695ACC

PATIENT
  Age: 89 Year
  Sex: Female
  Weight: 65 kg

DRUGS (9)
  1. AMLODIPINE [Concomitant]
     Active Substance: AMLODIPINE BESYLATE
  2. IRBESARTAN. [Concomitant]
     Active Substance: IRBESARTAN
  3. VALACYCLOVIR [Suspect]
     Active Substance: VALACYCLOVIR HYDROCHLORIDE
     Indication: HERPES ZOSTER
     Dosage: 3 GRAM DAILY;
     Route: 048
  4. DONEPEZIL. [Concomitant]
     Active Substance: DONEPEZIL
  5. LANTUS [Concomitant]
     Active Substance: INSULIN GLARGINE
  6. XARELTO [Concomitant]
     Active Substance: RIVAROXABAN
  7. HYDROCHLOROTHIAZIDE. [Concomitant]
     Active Substance: HYDROCHLOROTHIAZIDE
  8. SIMVASTATIN. [Concomitant]
     Active Substance: SIMVASTATIN
  9. VITAMIN B12 [Concomitant]
     Active Substance: CYANOCOBALAMIN

REACTIONS (9)
  - Rash [Recovered/Resolved]
  - Asthenia [Recovered/Resolved]
  - Myocardial infarction [Recovered/Resolved]
  - Pain [Recovered/Resolved]
  - Haemorrhage [Recovered/Resolved]
  - Hospitalisation [Recovered/Resolved]
  - Mobility decreased [Recovered/Resolved]
  - Abdominal distension [Recovered/Resolved]
  - Decreased appetite [Recovered/Resolved]
